FAERS Safety Report 7064769-2 (Version None)
Quarter: 2010Q4

REPORT INFORMATION
  Report Type: 
  Country: None (occurrence: None)
  Receive Date: 20101027
  Receipt Date: 19800725
  Transmission Date: 20110411
  Serious: Yes (Death)
  Sender: FDA-Public Use
  Company Number: GB-ROCHE-800424111001

PATIENT
  Age: 38 Year
  Sex: Female

DRUGS (2)
  1. VALIUM [Suspect]
     Route: 048
  2. VINDESINE SULFATE [Concomitant]
     Route: 042
     Dates: start: 19790401

REACTIONS (2)
  - METASTATIC MALIGNANT MELANOMA [None]
  - PRE-EXISTING DISEASE [None]
